FAERS Safety Report 4403883-4 (Version None)
Quarter: 2004Q3

REPORT INFORMATION
  Report Type: 
  Country: None (occurrence: None)
  Receive Date: 20040719
  Receipt Date: 20040712
  Transmission Date: 20050211
  Serious: Yes (Other)
  Sender: FDA-Public Use
  Company Number: 2003-07-3306

PATIENT
  Age: 29 Year
  Sex: Female

DRUGS (5)
  1. RIBAVIRIN [Suspect]
     Indication: SEVERE ACUTE RESPIRATORY SYNDROME
     Dosage: SEE IMAGE
     Route: 048
     Dates: start: 20030329, end: 20030401
  2. RIBAVIRIN [Suspect]
     Indication: SEVERE ACUTE RESPIRATORY SYNDROME
     Dosage: SEE IMAGE
     Route: 048
     Dates: start: 20030329
  3. RIBAVIRIN [Suspect]
     Indication: SEVERE ACUTE RESPIRATORY SYNDROME
     Dosage: SEE IMAGE
     Route: 048
     Dates: start: 20030401
  4. VIRAZOLE [Suspect]
     Indication: SEVERE ACUTE RESPIRATORY SYNDROME
     Dosage: 1 GM Q6H INTRAVENOUS
     Route: 042
     Dates: start: 20030326, end: 20030329
  5. LEVOFLOXACIN [Concomitant]

REACTIONS (3)
  - HYPOCALCAEMIA [None]
  - HYPOMAGNESAEMIA [None]
  - LEUKOPENIA [None]
